FAERS Safety Report 15574138 (Version 1)
Quarter: 2018Q4

REPORT INFORMATION
  Report Type: Spontaneous
  Country: ES (occurrence: ES)
  Receive Date: 20181101
  Receipt Date: 20181101
  Transmission Date: 20190205
  Serious: Yes (Other)
  Sender: FDA-Public Use
  Company Number: ES-AUROBINDO-AUR-APL-2018-053122

PATIENT
  Age: 63 Year
  Sex: Female

DRUGS (1)
  1. SIMVASTATIN 20MG FILM-COATED TABLETS [Suspect]
     Active Substance: SIMVASTATIN
     Indication: PRODUCT USED FOR UNKNOWN INDICATION
     Dosage: 20 MILLIGRAM, ONCE A DAY
     Route: 048
     Dates: start: 2011

REACTIONS (2)
  - Depressed level of consciousness [Unknown]
  - Balance disorder [Unknown]

NARRATIVE: CASE EVENT DATE: 201710
